FAERS Safety Report 17829949 (Version 2)
Quarter: 2020Q2

REPORT INFORMATION
  Report Type: Spontaneous
  Country: US (occurrence: US)
  Receive Date: 20200527
  Receipt Date: 20200620
  Transmission Date: 20200714
  Serious: No
  Sender: FDA-Public Use
  Company Number: US-ASTRAZENECA-2020SE68724

PATIENT
  Sex: Male

DRUGS (1)
  1. BYDUREON BCISE [Suspect]
     Active Substance: EXENATIDE
     Indication: TYPE 2 DIABETES MELLITUS
     Route: 065
     Dates: start: 201907

REACTIONS (5)
  - Sensory loss [Unknown]
  - Injection site haemorrhage [Unknown]
  - Injection site extravasation [Unknown]
  - Device issue [Unknown]
  - Incorrect dose administered by device [Unknown]
